FAERS Safety Report 5629842-1 (Version None)
Quarter: 2008Q1

REPORT INFORMATION
  Report Type: 
  Country: None (occurrence: None)
  Receive Date: 20080218
  Receipt Date: 20080212
  Transmission Date: 20080703
  Serious: Yes (Hospitalization)
  Sender: FDA-Public Use
  Company Number: US-ASTRAZENECA-2007UW15941

PATIENT
  Age: 29 Year
  Sex: Male
  Weight: 102.3 kg

DRUGS (8)
  1. SEROQUEL [Suspect]
     Indication: BIPOLAR DISORDER
     Dates: start: 19990901, end: 20070701
  2. SEROQUEL [Suspect]
     Indication: DEPRESSION
     Dates: start: 19990901, end: 20070701
  3. GEODON [Concomitant]
     Dates: start: 19990901, end: 20070701
  4. HALDOL [Concomitant]
  5. RISPERDAL [Concomitant]
     Dates: start: 19990101, end: 20010101
  6. THORAZINE [Concomitant]
     Dates: start: 20011201
  7. ZYPREXA [Concomitant]
     Dates: start: 19990101, end: 20010101
  8. PROZAC [Concomitant]
     Dates: start: 20071101

REACTIONS (3)
  - HOSPITALISATION [None]
  - PSYCHOTIC DISORDER [None]
  - TYPE 2 DIABETES MELLITUS [None]
